FAERS Safety Report 7545638-8 (Version None)
Quarter: 2011Q2

REPORT INFORMATION
  Report Type: 
  Country: None (occurrence: None)
  Receive Date: 20110614
  Receipt Date: 20110531
  Transmission Date: 20111010
  Serious: Yes (Hospitalization)
  Sender: FDA-Public Use
  Company Number: US-RANBAXY-2011US-45017

PATIENT
  Age: 15 Year
  Sex: Male

DRUGS (4)
  1. SEVOFLURANE [Interacting]
     Indication: GENERAL ANAESTHESIA
     Dosage: UNK
     Route: 055
  2. ONDANSETRON [Suspect]
     Indication: PRODUCT USED FOR UNKNOWN INDICATION
     Dosage: UNK, UNK
     Route: 065
  3. ISOFLURANE [Interacting]
     Indication: GENERAL ANAESTHESIA
     Dosage: UNK
     Route: 055
  4. PANCURONIUM BROMIDE [Interacting]
     Indication: PRODUCT USED FOR UNKNOWN INDICATION
     Dosage: UNK
     Route: 065

REACTIONS (2)
  - ARRHYTHMIA [None]
  - DRUG INTERACTION [None]
